FAERS Safety Report 15685563 (Version 22)
Quarter: 2020Q4

REPORT INFORMATION
  Report Type: Spontaneous
  Country: US (occurrence: US)
  Receive Date: 20181204
  Receipt Date: 20201125
  Transmission Date: 20210113
  Serious: No
  Sender: FDA-Public Use
  Company Number: US-PFIZER INC-2018255254

PATIENT
  Age: 63 Year
  Sex: Female
  Weight: 147 kg

DRUGS (10)
  1. LYRICA [Suspect]
     Active Substance: PREGABALIN
     Indication: NEUROPATHY PERIPHERAL
  2. HYDROCODONE [Concomitant]
     Active Substance: HYDROCODONE
     Indication: PAIN
     Dosage: 1 DF, 3X/DAY
     Route: 048
  3. LYRICA [Suspect]
     Active Substance: PREGABALIN
     Indication: BACK PAIN
     Dosage: 100 MG, 4X/DAY
     Route: 048
  4. PREGABALIN. [Suspect]
     Active Substance: PREGABALIN
     Dosage: 100 MG, 4X/DAY
     Route: 048
  5. LYRICA [Suspect]
     Active Substance: PREGABALIN
     Indication: NECK PAIN
     Dosage: 100 MG, 3X/DAY (EVERY 8 HOURS AND EXTRA EVERY 4 HOURS)
     Route: 048
  6. LYRICA [Suspect]
     Active Substance: PREGABALIN
     Indication: NERVE INJURY
  7. LYRICA [Suspect]
     Active Substance: PREGABALIN
     Indication: DISCOMFORT
  8. LYRICA [Suspect]
     Active Substance: PREGABALIN
     Indication: PAIN
  9. LYRICA [Suspect]
     Active Substance: PREGABALIN
     Indication: FIBROMYALGIA
     Dosage: 100 MG, 4X/DAY (WITH 1 ADDITIONAL CAPSULE IF NEEDED FOR SEVERE DISCOMFORT)
     Route: 048
  10. LYRICA [Suspect]
     Active Substance: PREGABALIN
     Indication: MUSCLE SPASMS
     Dosage: 100 MG, 3X/DAY
     Route: 048

REACTIONS (8)
  - Product dispensing error [Unknown]
  - Gait disturbance [Unknown]
  - Intentional product use issue [Unknown]
  - Headache [Unknown]
  - Pain [Unknown]
  - Respiration abnormal [Unknown]
  - Illness [Unknown]
  - Feeling abnormal [Unknown]
